FAERS Safety Report 6083638-8 (Version None)
Quarter: 2009Q1

REPORT INFORMATION
  Report Type: 
  Country: None (occurrence: None)
  Receive Date: 20090219
  Receipt Date: 20090209
  Transmission Date: 20090719
  Serious: Yes (Other)
  Sender: FDA-Public Use
  Company Number: AE-AMGEN-UK330338

PATIENT
  Sex: Male
  Weight: 77.5 kg

DRUGS (5)
  1. NEULASTIM [Suspect]
     Indication: NEUTROPENIA
     Route: 058
     Dates: start: 20081016
  2. CYCLOPHOSPHAMIDE [Concomitant]
     Route: 065
     Dates: start: 20081015
  3. DOXORUBICIN HYDROCHLORIDE [Concomitant]
     Route: 065
     Dates: start: 20081015
  4. VINCRISTINE [Concomitant]
     Route: 065
     Dates: start: 20081015
  5. PREDNISOLONE [Concomitant]
     Route: 065
     Dates: start: 20081015

REACTIONS (1)
  - FEBRILE NEUTROPENIA [None]
